FAERS Safety Report 7730611-7 (Version None)
Quarter: 2011Q3

REPORT INFORMATION
  Report Type: 
  Country: None (occurrence: None)
  Receive Date: 20110906
  Receipt Date: 20110829
  Transmission Date: 20111222
  Serious: Yes (Other)
  Sender: FDA-Public Use
  Company Number: DE-TEVA-298836GER

PATIENT
  Sex: Male

DRUGS (5)
  1. KEPPRA 500/1000MG [Concomitant]
  2. VIMPAT 100 [Concomitant]
  3. CLONAZEPAM [Concomitant]
  4. CLINDAMYCIN [Suspect]
     Indication: DENTAL OPERATION
     Dosage: 1800 MILLIGRAM;
     Route: 048
     Dates: start: 20110801
  5. LYRICA 150/300 [Concomitant]

REACTIONS (2)
  - CONDITION AGGRAVATED [None]
  - CONVULSION [None]
